FAERS Safety Report 7329074-5 (Version None)
Quarter: 2011Q1

REPORT INFORMATION
  Report Type: 
  Country: None (occurrence: None)
  Receive Date: 20110217
  Receipt Date: 20110207
  Transmission Date: 20110831
  Serious: Yes (Hospitalization)
  Sender: FDA-Public Use
  Company Number: 2011022973

PATIENT
  Age: 67 Year
  Sex: Female
  Weight: 91.7 kg

DRUGS (10)
  1. LASIX [Concomitant]
  2. STEMETIL ^AVENTIS PHARMA^ (PROCHLORPERAZINE) [Concomitant]
  3. BACLOFEN [Concomitant]
  4. MORPHINE [Concomitant]
  5. BETAMETHASONE [Concomitant]
  6. GABAPENTIN [Concomitant]
  7. DALTEPARIN SODIUM [Suspect]
     Indication: DEEP VEIN THROMBOSIS
     Dosage: 12500 IU, 1X/DAY, SUBCUTANEOUS ; 17500 IU
     Route: 058
     Dates: start: 20110124, end: 20110201
  8. DALTEPARIN SODIUM [Suspect]
     Indication: BREAST CANCER
     Dosage: 12500 IU, 1X/DAY, SUBCUTANEOUS ; 17500 IU
     Route: 058
     Dates: start: 20110124, end: 20110201
  9. DALTEPARIN SODIUM [Suspect]
     Indication: DEEP VEIN THROMBOSIS
     Dosage: 12500 IU, 1X/DAY, SUBCUTANEOUS ; 17500 IU
     Route: 058
     Dates: start: 20100415, end: 20110124
  10. DALTEPARIN SODIUM [Suspect]
     Indication: BREAST CANCER
     Dosage: 12500 IU, 1X/DAY, SUBCUTANEOUS ; 17500 IU
     Route: 058
     Dates: start: 20100415, end: 20110124

REACTIONS (10)
  - CELLULITIS [None]
  - METASTASES TO LYMPH NODES [None]
  - BREAST CANCER RECURRENT [None]
  - LUNG NEOPLASM MALIGNANT [None]
  - SENSORY LOSS [None]
  - THROMBOPHLEBITIS SUPERFICIAL [None]
  - METASTASES TO LUNG [None]
  - SPINAL CORD DISORDER [None]
  - METASTASIS [None]
  - URINARY INCONTINENCE [None]
